FAERS Safety Report 11579577 (Version 4)
Quarter: 2017Q4

REPORT INFORMATION
  Report Type: Spontaneous
  Country: DE (occurrence: DE)
  Receive Date: 20150930
  Receipt Date: 20171013
  Transmission Date: 20180320
  Serious: Yes (Life-Threatening, Hospitalization, Other)
  Sender: FDA-Public Use
  Company Number: DE-TEVA-596377GER

PATIENT
  Age: 1 Year
  Sex: Female
  Weight: 9.5 kg

DRUGS (2)
  1. IBU [Suspect]
     Active Substance: IBUPROFEN
     Indication: TOOTHACHE
  2. IBU [Suspect]
     Active Substance: IBUPROFEN
     Indication: TEETHING
     Route: 048
     Dates: start: 201507, end: 201509

REACTIONS (6)
  - Aplasia pure red cell [Recovered/Resolved]
  - Fatigue [Recovered/Resolved]
  - Anaemia [Recovered/Resolved]
  - Aplastic anaemia [Unknown]
  - Jaundice [Recovered/Resolved]
  - Pallor [Recovered/Resolved]

NARRATIVE: CASE EVENT DATE: 2015
